FAERS Safety Report 10236663 (Version 1)
Quarter: 2014Q2

REPORT INFORMATION
  Report Type: Spontaneous
  Country: BR (occurrence: BR)
  Receive Date: 20140613
  Receipt Date: 20140613
  Transmission Date: 20141212
  Serious: Yes (Other)
  Sender: FDA-Public Use
  Company Number: BR-PFIZER INC-2014158487

PATIENT
  Age: 58 Year
  Sex: Female
  Weight: 51.5 kg

DRUGS (9)
  1. LYRICA [Suspect]
     Indication: SPINAL PAIN
     Dosage: 75 MG (1 CAPSULE), 3X/DAY (EVERY 8 HOURS)
     Route: 048
     Dates: start: 20120528
  2. ATENOLOL [Concomitant]
     Indication: CARDIAC DISORDER
     Dosage: 1 TABLET, 2X/DAY
     Dates: start: 201111
  3. ATENOLOL [Concomitant]
     Indication: HYPERTENSION
  4. CALCIUM CARBONATE [Concomitant]
     Indication: OSTEOARTHRITIS
     Dosage: 1 TABLET, 2X/DAY
     Dates: start: 2012
  5. CALCIUM CARBONATE [Concomitant]
     Indication: CALCIUM DEFICIENCY
  6. LOSARTAN [Concomitant]
     Indication: HYPERTENSION
     Dosage: 2 TABLETS, DAILY
     Dates: start: 201111
  7. ROSUVASTATIN [Concomitant]
     Indication: BLOOD CHOLESTEROL INCREASED
     Dosage: 1 TABLET, 1X/DAY (AT NIGHT)
     Dates: start: 201111
  8. ULTRACET [Concomitant]
     Indication: PAIN
     Dosage: 1 TABLET, DAILY
     Dates: start: 2013
  9. ZOLEDRONATE [Concomitant]
     Indication: OSTEOPOROSIS
     Dosage: 1 TABLET, WEEKLY
     Dates: start: 2013

REACTIONS (4)
  - Spinal disorder [Unknown]
  - Osteoarthritis [Unknown]
  - Insomnia [Unknown]
  - Drug ineffective [Not Recovered/Not Resolved]
